FAERS Safety Report 19396833 (Version 5)
Quarter: 2022Q2

REPORT INFORMATION
  Report Type: Spontaneous
  Country: JP (occurrence: JP)
  Receive Date: 20210609
  Receipt Date: 20220412
  Transmission Date: 20220721
  Serious: Yes (Death, Hospitalization, Other)
  Sender: FDA-Public Use
  Company Number: JP-CHUGAI-2021000791

PATIENT
  Age: 70 Year
  Sex: Male
  Weight: 85 kg

DRUGS (42)
  1. ACTEMRA [Suspect]
     Active Substance: TOCILIZUMAB
     Indication: COVID-19
     Dosage: 680 MILLIGRAM TWICE A WEEK?ON 09/MAY/2021, HE RECEIVED MOST RECENT DOSE PRIOR TO THE EVENTS ONSET
     Route: 041
     Dates: start: 20210502, end: 20210509
  2. PREDNISOLONE [Suspect]
     Active Substance: PREDNISOLONE
     Indication: Product used for unknown indication
     Dosage: 60 UNK
     Route: 048
     Dates: start: 20210505, end: 20210511
  3. PREDNISOLONE [Suspect]
     Active Substance: PREDNISOLONE
     Dosage: 50 MILLIGRAM, QD
     Route: 048
     Dates: start: 20210512, end: 20210514
  4. PREDNISOLONE [Suspect]
     Active Substance: PREDNISOLONE
     Dosage: 40 MILLIGRAM, QD
     Route: 048
     Dates: start: 20210515, end: 20210516
  5. PREDNISOLONE [Suspect]
     Active Substance: PREDNISOLONE
     Dosage: 30 MILLIGRAM, QD
     Route: 048
     Dates: start: 20210517
  6. OLUMIANT [Concomitant]
     Active Substance: BARICITINIB
     Dosage: 4 MILLIGRAM, QD
     Route: 048
     Dates: start: 20210430, end: 20210503
  7. RABEPRAZOLE SODIUM [Concomitant]
     Active Substance: RABEPRAZOLE SODIUM
     Dosage: 10 MILLIGRAM, HS
     Route: 048
     Dates: end: 20210507
  8. SILODOSIN OD [Concomitant]
     Dosage: 4 MILLIGRAM, BID
     Route: 048
     Dates: end: 20210506
  9. HERBALS [Concomitant]
     Active Substance: HERBALS
     Dosage: 126 MILLIGRAM, TID
     Route: 048
     Dates: end: 20210506
  10. BROTIZOLAM [Concomitant]
     Active Substance: BROTIZOLAM
     Dosage: 0.25 MILLIGRAM, HS
     Route: 048
     Dates: end: 20210506
  11. FLUNITRAZEPAM [Concomitant]
     Active Substance: FLUNITRAZEPAM
     Dosage: 1 MILLIGRAM, HS
     Route: 048
     Dates: end: 20210506
  12. XARELTO [Concomitant]
     Active Substance: RIVAROXABAN
     Dosage: 15 MILLIGRAM, QD
     Route: 048
     Dates: end: 20210506
  13. IPRAGLIFLOZIN L-PROLINE\SITAGLIPTIN PHOSPHATE [Concomitant]
     Active Substance: IPRAGLIFLOZIN L-PROLINE\SITAGLIPTIN PHOSPHATE
     Dosage: 1 TAB, QD
     Route: 048
     Dates: end: 20210506
  14. FUROSEMIDE [Concomitant]
     Active Substance: FUROSEMIDE
     Dosage: 20 MILLIGRAM, QD
     Route: 048
     Dates: end: 20210506
  15. FUROSEMIDE [Concomitant]
     Active Substance: FUROSEMIDE
     Dosage: 20 MILLIGRAM
     Route: 065
     Dates: start: 20210505
  16. ASPIRIN [Concomitant]
     Active Substance: ASPIRIN
     Dosage: 100 MILLIGRAM, QD
     Route: 048
     Dates: start: 20210430, end: 20210511
  17. AMLODIPINE BESYLATE [Concomitant]
     Active Substance: AMLODIPINE BESYLATE
     Dosage: 10 MILLIGRAM, QD
     Route: 048
     Dates: end: 20210511
  18. VALSARTAN [Concomitant]
     Active Substance: VALSARTAN
     Dosage: 80 MILLIGRAM, QD
     Route: 048
     Dates: end: 20210506
  19. ISOSORBIDE DINITRATE [Concomitant]
     Active Substance: ISOSORBIDE DINITRATE
     Dosage: 1 SHEET, QD
     Route: 062
  20. COLCHICINE [Concomitant]
     Active Substance: COLCHICINE
     Dosage: 0.5 MILLIGRAM, BID
     Route: 048
     Dates: start: 20210505, end: 20210511
  21. HERBALS [Concomitant]
     Active Substance: HERBALS
     Dosage: 2.5 GRAM, TID
     Route: 048
     Dates: start: 20210507, end: 20210516
  22. LANSOPRAZOLE [Concomitant]
     Active Substance: LANSOPRAZOLE
     Dosage: 15 MILLIGRAM, QD
     Route: 048
     Dates: start: 20210502, end: 20210518
  23. TELMISARTAN [Concomitant]
     Active Substance: TELMISARTAN
     Dosage: 20 MILLIGRAM, QD
     Route: 048
     Dates: start: 20210507, end: 20210510
  24. SULFAMETHOXAZOLE\TRIMETHOPRIM [Concomitant]
     Active Substance: SULFAMETHOXAZOLE\TRIMETHOPRIM
     Dosage: 1 GRAM, QD
     Route: 048
     Dates: start: 20210509, end: 20210518
  25. VEKLURY [Concomitant]
     Active Substance: REMDESIVIR
     Dosage: 100 MILLIGRAM
     Route: 041
     Dates: start: 20210429, end: 20210508
  26. SOLU-MEDROL [Concomitant]
     Active Substance: METHYLPREDNISOLONE SODIUM SUCCINATE
     Dosage: 1000 MILLIGRAM
     Route: 041
     Dates: start: 20210502, end: 20210504
  27. HEPARIN CALCIUM [Concomitant]
     Active Substance: HEPARIN CALCIUM
     Dosage: 5000 UNITS, EVERY 12 HOURS
     Route: 058
     Dates: start: 20210429, end: 20210502
  28. FENTANYL CITRATE [Concomitant]
     Active Substance: FENTANYL CITRATE
     Dosage: 100UG/HR
     Route: 065
     Dates: start: 20210502
  29. HUMULIN R [Concomitant]
     Active Substance: INSULIN HUMAN
     Dosage: 1 UNIT/HR
     Dates: start: 20210502, end: 20210511
  30. NOREPINEPHRINE [Concomitant]
     Active Substance: NOREPINEPHRINE
     Dosage: 0.4MG/HR
     Dates: start: 20210502, end: 20210503
  31. NOREPINEPHRINE [Concomitant]
     Active Substance: NOREPINEPHRINE
     Dosage: 0.1-2MG/HR
     Dates: start: 20210509, end: 20210510
  32. PROPOFOL [Concomitant]
     Active Substance: PROPOFOL
     Dosage: 40MG/HR-100MG/HR
     Route: 041
     Dates: start: 20210502, end: 20210516
  33. DEXMEDETOMIDINE HYDROCHLORIDE [Concomitant]
     Active Substance: DEXMEDETOMIDINE HYDROCHLORIDE
     Dosage: 28UG/HR
     Route: 041
     Dates: start: 20210502, end: 20210509
  34. HEPARIN SODIUM [Concomitant]
     Active Substance: HEPARIN SODIUM
     Dosage: 10000U/DAY
     Route: 041
     Dates: start: 20210502, end: 20210504
  35. HEPARIN SODIUM [Concomitant]
     Active Substance: HEPARIN SODIUM
     Dosage: 12500U/DAY
     Route: 041
     Dates: start: 20210505, end: 20210506
  36. HEPARIN SODIUM [Concomitant]
     Active Substance: HEPARIN SODIUM
     Dosage: 15000U/DAY
     Route: 041
     Dates: start: 20210508, end: 20210508
  37. MEROPENEM [Concomitant]
     Active Substance: MEROPENEM
     Dosage: 3 GRAM
     Route: 041
     Dates: start: 20210502, end: 20210510
  38. DEXAMETHASONE SODIUM PHOSPHATE [Concomitant]
     Active Substance: DEXAMETHASONE SODIUM PHOSPHATE
     Dosage: 6.6MG
     Route: 041
     Dates: start: 20210502, end: 20210509
  39. MIDAZOLAM [Concomitant]
     Active Substance: MIDAZOLAM
     Dosage: 30MG
     Dates: start: 20210502, end: 20210503
  40. MIDAZOLAM [Concomitant]
     Active Substance: MIDAZOLAM
     Dosage: 2-20MG/HR
     Route: 041
     Dates: start: 20210509, end: 20210519
  41. PHENYLEPHRINE HYDROCHLORIDE [Concomitant]
     Active Substance: PHENYLEPHRINE HYDROCHLORIDE
     Dosage: 0.1MG
     Route: 065
     Dates: start: 20210502, end: 20210502
  42. ACETAMINOPHEN [Concomitant]
     Active Substance: ACETAMINOPHEN
     Dosage: 1000 MG/100ML, AT THE PRESENCE OF PYREXIA
     Route: 041
     Dates: start: 20210505, end: 20210511

REACTIONS (11)
  - Disease progression [Fatal]
  - Prothrombin time prolonged [Recovered/Resolved]
  - Blood fibrinogen decreased [Recovered/Resolved]
  - Fibrin D dimer increased [Not Recovered/Not Resolved]
  - Gastric haemorrhage [Unknown]
  - Haematuria [Unknown]
  - Vomiting [Unknown]
  - Blood pressure decreased [Unknown]
  - Platelet count decreased [Unknown]
  - Fibrin degradation products increased [Unknown]
  - Off label use [Unknown]

NARRATIVE: CASE EVENT DATE: 20210508
